FAERS Safety Report 7685515-5 (Version None)
Quarter: 2011Q3

REPORT INFORMATION
  Report Type: 
  Country: None (occurrence: None)
  Receive Date: 20110816
  Receipt Date: 20101130
  Transmission Date: 20111222
  Serious: No
  Sender: FDA-Public Use
  Company Number: US-BAYER-2010-008175

PATIENT
  Age: 27 Year
  Sex: Female

DRUGS (2)
  1. MIRENA [Suspect]
     Dosage: 20 MCG/24HR, QD
     Route: 015
     Dates: start: 20030101, end: 20100101
  2. MIRENA [Suspect]
     Dosage: 20 MCG/24HR, QD
     Route: 015
     Dates: start: 20100501

REACTIONS (10)
  - MIGRAINE [None]
  - HEADACHE [None]
  - VISION BLURRED [None]
  - ARTHRALGIA [None]
  - WEIGHT INCREASED [None]
  - RASH [None]
  - DIZZINESS [None]
  - NAUSEA [None]
  - ALOPECIA [None]
  - ABDOMINAL PAIN [None]
